FAERS Safety Report 17858803 (Version 2)
Quarter: 2020Q2

REPORT INFORMATION
  Report Type: Report from Study
  Country: None (occurrence: US)
  Receive Date: 20200604
  Receipt Date: 20200605
  Transmission Date: 20200714
  Serious: No
  Sender: FDA-Public Use
  Company Number: US-US WORLDMEDS, LLC-USW202001-000032

PATIENT
  Age: 77 Year
  Sex: Male
  Weight: 72.5 kg

DRUGS (2)
  1. APOKYN [Suspect]
     Active Substance: APOMORPHINE HYDROCHLORIDE
     Indication: PARKINSON^S DISEASE
     Dosage: (30MG/3ML)0.2ML, EVERY 2 HOURS AS NEEDED
     Route: 058
     Dates: start: 20191019, end: 20200108
  2. APOKYN [Suspect]
     Active Substance: APOMORPHINE HYDROCHLORIDE
     Dosage: (30MG/3ML) 0.1ML, EVERY 2 HOURS AS NEEDED
     Route: 058
     Dates: end: 20200203

REACTIONS (8)
  - Dysstasia [Recovered/Resolved]
  - Tremor [Recovered/Resolved]
  - Heart rate decreased [Recovered/Resolved]
  - Peripheral coldness [Recovered/Resolved]
  - Somnolence [Recovered/Resolved]
  - Blood pressure decreased [Recovered/Resolved]
  - Lethargy [Recovered/Resolved]
  - Asthenia [Recovered/Resolved]

NARRATIVE: CASE EVENT DATE: 20200108
